FAERS Safety Report 6059086-3 (Version None)
Quarter: 2009Q1

REPORT INFORMATION
  Report Type: 
  Country: None (occurrence: None)
  Receive Date: 20090130
  Receipt Date: 20090122
  Transmission Date: 20090719
  Serious: Yes (Hospitalization)
  Sender: FDA-Public Use
  Company Number: FR-JNJFOC-20090105813

PATIENT
  Sex: Male

DRUGS (9)
  1. DURAGESIC-100 [Suspect]
     Route: 062
  2. DURAGESIC-100 [Suspect]
     Indication: PAIN
     Route: 062
  3. MORPHINE [Suspect]
     Indication: PAIN
     Route: 048
  4. NEXIUM [Concomitant]
     Route: 048
  5. FORLAX [Concomitant]
  6. PREVISCAN [Concomitant]
  7. COZAAR [Concomitant]
     Route: 048
  8. AMLOR [Concomitant]
  9. VELCADE [Concomitant]
     Indication: MULTIPLE MYELOMA

REACTIONS (5)
  - AGGRESSION [None]
  - BRIEF PSYCHOTIC DISORDER WITH MARKED STRESSORS [None]
  - DELIRIUM [None]
  - HALLUCINATION, AUDITORY [None]
  - HALLUCINATION, VISUAL [None]
